FAERS Safety Report 15322263 (Version 1)
Quarter: 2018Q3

REPORT INFORMATION
  Report Type: Spontaneous
  Country: FR (occurrence: FR)
  Receive Date: 20180827
  Receipt Date: 20180827
  Transmission Date: 20181010
  Serious: Yes (Other)
  Sender: FDA-Public Use
  Company Number: PHHY2018FR079918

PATIENT
  Age: 6 Year
  Sex: Male

DRUGS (3)
  1. CYCLOPHOSPHAMIDE. [Suspect]
     Active Substance: CYCLOPHOSPHAMIDE
     Indication: PULMONARY HAEMOSIDEROSIS
     Dosage: UNK
     Route: 065
  2. AZATHIOPRINE. [Suspect]
     Active Substance: AZATHIOPRINE
     Indication: PULMONARY HAEMOSIDEROSIS
     Dosage: UNK
     Route: 065
  3. HYDROXYCHLOROQUINE [Suspect]
     Active Substance: HYDROXYCHLOROQUINE
     Indication: PULMONARY HAEMOSIDEROSIS
     Dosage: UNK
     Route: 065

REACTIONS (3)
  - Pulmonary haemosiderosis [Unknown]
  - Product use in unapproved indication [Unknown]
  - Disease recurrence [Unknown]
